FAERS Safety Report 12854799 (Version 1)
Quarter: 2016Q4

REPORT INFORMATION
  Report Type: Spontaneous
  Country: US (occurrence: US)
  Receive Date: 20161017
  Receipt Date: 20161017
  Transmission Date: 20170207
  Serious: No
  Sender: FDA-Public Use
  Company Number: US-TEVA-695615ACC

PATIENT
  Age: 33 Year
  Sex: Female
  Weight: 57.2 kg

DRUGS (3)
  1. VITAMINS [Concomitant]
     Active Substance: VITAMINS
  2. PLAN B ONE-STEP [Suspect]
     Active Substance: LEVONORGESTREL
     Indication: POST COITAL CONTRACEPTION
     Dates: start: 201508, end: 201508
  3. ORTHOTRICYCLINE [Concomitant]
     Indication: CONTRACEPTION

REACTIONS (1)
  - Smear cervix abnormal [Unknown]

NARRATIVE: CASE EVENT DATE: 20160916
